FAERS Safety Report 5196085-8 (Version None)
Quarter: 2007Q1

REPORT INFORMATION
  Report Type: 
  Country: None (occurrence: None)
  Receive Date: 20070102
  Receipt Date: 20061225
  Transmission Date: 20070707
  Serious: Yes (Life-Threatening, Hospitalization)
  Sender: FDA-Public Use
  Company Number: JP-SHR-JP-2005-023617

PATIENT
  Age: 30 Year
  Sex: Female
  Weight: 55 kg

DRUGS (4)
  1. BETAFERON [Suspect]
     Indication: RELAPSING-REMITTING MULTIPLE SCLEROSIS
     Dosage: 8 MIU, EVERY 2D
     Route: 058
     Dates: start: 20050301, end: 20051016
  2. VOLTAREN [Suspect]
     Indication: ARTHRALGIA
     Dosage: 25 MG, 1X/DAY
     Route: 048
     Dates: start: 20050927, end: 20051016
  3. GASTER [Concomitant]
     Indication: GASTRIC ULCER
     Dosage: 40 MG, 1X/DAY
     Route: 048
     Dates: start: 20050915, end: 20051016
  4. GASTROM [Concomitant]
     Indication: GASTRIC ULCER
     Dosage: 3 G, 1X/DAY
     Route: 048
     Dates: start: 20050915, end: 20051016

REACTIONS (11)
  - ACUTE HEPATIC FAILURE [None]
  - CEREBRAL CYST [None]
  - COAGULATION TEST ABNORMAL [None]
  - HEADACHE [None]
  - HEPATIC FIBROSIS [None]
  - HEPATIC STEATOSIS [None]
  - HEPATITIS [None]
  - MULTIPLE SCLEROSIS RELAPSE [None]
  - PLATELET COUNT DECREASED [None]
  - RASH PAPULAR [None]
  - UPPER RESPIRATORY TRACT INFLAMMATION [None]
